FAERS Safety Report 8414420-1 (Version None)
Quarter: 2012Q2

REPORT INFORMATION
  Report Type: 
  Country: None (occurrence: None)
  Receive Date: 20120605
  Receipt Date: 20120525
  Transmission Date: 20120825
  Serious: No
  Sender: FDA-Public Use
  Company Number: US-ASTRAZENECA-2012SE34876

PATIENT
  Age: 37 Year
  Sex: Male

DRUGS (2)
  1. SEROQUEL XR [Suspect]
     Indication: ANXIETY
     Route: 048
  2. SEROQUEL XR [Suspect]
     Indication: DEPRESSION
     Route: 048

REACTIONS (1)
  - KERATOCONUS [None]
